FAERS Safety Report 7495939-7 (Version None)
Quarter: 2011Q2

REPORT INFORMATION
  Report Type: 
  Country: None (occurrence: None)
  Receive Date: 20110523
  Receipt Date: 20110509
  Transmission Date: 20111010
  Serious: Yes (Other)
  Sender: FDA-Public Use
  Company Number: CA-JNJFOC-20110504679

PATIENT
  Sex: Male
  Weight: 81 kg

DRUGS (5)
  1. PANTOLOC [Concomitant]
  2. REMICADE [Suspect]
     Indication: CROHN'S DISEASE
     Route: 042
     Dates: start: 20041001
  3. REMICADE [Suspect]
     Route: 042
     Dates: start: 20110101
  4. FERROUS SULFATE TAB [Concomitant]
  5. IMURAN [Concomitant]

REACTIONS (1)
  - INTESTINAL STENOSIS [None]
